FAERS Safety Report 6520052-2 (Version None)
Quarter: 2009Q4

REPORT INFORMATION
  Report Type: 
  Country: None (occurrence: None)
  Receive Date: 20091229
  Receipt Date: 20091215
  Transmission Date: 20100525
  Serious: Yes (Other)
  Sender: FDA-Public Use
  Company Number: PHHY2009FR57089

PATIENT
  Age: 12 Year
  Sex: Male

DRUGS (1)
  1. RITALIN [Suspect]
     Dosage: UNK
     Dates: start: 20050101, end: 20080101

REACTIONS (1)
  - OBSESSIVE-COMPULSIVE DISORDER [None]
